FAERS Safety Report 16075564 (Version 1)
Quarter: 2019Q1

REPORT INFORMATION
  Report Type: Spontaneous
  Country: ES (occurrence: ES)
  Receive Date: 20190315
  Receipt Date: 20190315
  Transmission Date: 20190418
  Serious: Yes (Other)
  Sender: FDA-Public Use
  Company Number: ES-SUN PHARMACEUTICAL INDUSTRIES LTD-2012R1-58145

PATIENT
  Age: 38 Year
  Sex: Female

DRUGS (17)
  1. DICLOFENAC [Suspect]
     Active Substance: DICLOFENAC
     Indication: PAIN
     Dosage: 50 MG, BID
     Route: 030
  2. DOLANTINE [Suspect]
     Active Substance: MEPERIDINE HYDROCHLORIDE
     Indication: RENAL COLIC
     Dosage: UNK
     Route: 065
  3. DIAZEPAM. [Suspect]
     Active Substance: DIAZEPAM
     Indication: NEPHRITIC SYNDROME
     Dosage: UNK ()
     Route: 065
  4. BUSCOPAN [Suspect]
     Active Substance: BUTYLSCOPOLAMINE BROMIDE
     Indication: NEPHRITIC SYNDROME
     Dosage: UNK
     Route: 065
  5. DIAZEPAM. [Suspect]
     Active Substance: DIAZEPAM
     Indication: RENAL COLIC
     Dosage: UNK
     Route: 042
  6. DOLANTINE [Concomitant]
     Indication: PAIN
     Dosage: UNK
     Route: 065
  7. DICLOFENAC [Suspect]
     Active Substance: DICLOFENAC
     Indication: RENAL COLIC
     Dosage: 50 MILLIGRAM, Q12H
     Route: 030
  8. PARACETAMOL [Suspect]
     Active Substance: ACETAMINOPHEN
     Indication: RENAL PAIN
     Dosage: UNK
     Route: 042
  9. DOLANTINE [Suspect]
     Active Substance: MEPERIDINE HYDROCHLORIDE
     Indication: NEPHRITIC SYNDROME
     Dosage: UNK
     Route: 065
  10. DOLANTINE [Suspect]
     Active Substance: MEPERIDINE HYDROCHLORIDE
     Indication: RENAL PAIN
     Dosage: UNK
     Route: 065
  11. BUSCOPAN [Suspect]
     Active Substance: BUTYLSCOPOLAMINE BROMIDE
     Indication: RENAL COLIC
     Dosage: UNK ()
     Route: 065
  12. BUSCOPAN [Suspect]
     Active Substance: BUTYLSCOPOLAMINE BROMIDE
     Indication: RENAL PAIN
     Dosage: UNK
     Route: 042
  13. DIPYRONE [Concomitant]
     Active Substance: DIPYRONE
     Indication: RENAL PAIN
     Dosage: UNK
     Route: 042
  14. PARACETAMOL [Suspect]
     Active Substance: ACETAMINOPHEN
     Indication: RENAL COLIC
     Dosage: UNK
     Route: 065
  15. METAMIZOL ^NORMON^ [Suspect]
     Active Substance: METAMIZOLE SODIUM
     Indication: RENAL COLIC
     Dosage: UNK ()
     Route: 065
  16. PARACETAMOL [Suspect]
     Active Substance: ACETAMINOPHEN
     Indication: NEPHRITIC SYNDROME
     Dosage: UNK
     Route: 065
  17. METAMIZOL ^NORMON^ [Suspect]
     Active Substance: METAMIZOLE SODIUM
     Indication: NEPHRITIC SYNDROME
     Dosage: UNK ()
     Route: 042

REACTIONS (5)
  - Pre-eclampsia [None]
  - Exposure during pregnancy [Unknown]
  - Oligohydramnios [Recovered/Resolved]
  - Proteinuria [None]
  - Hypertension [None]
